FAERS Safety Report 4535976-5 (Version None)
Quarter: 2004Q4

REPORT INFORMATION
  Report Type: 
  Country: None (occurrence: None)
  Receive Date: 20041222
  Receipt Date: 20041222
  Transmission Date: 20050328
  Serious: Yes (Other)
  Sender: FDA-Public Use
  Company Number: None

PATIENT
  Age: 50 Year
  Sex: Male
  Weight: 83.4619 kg

DRUGS (3)
  1. EFUDEX [Suspect]
     Indication: SKIN DISORDER
     Dosage: APPLY TO FACIAL SKIN/ 2 WEEKS TO FACE
     Route: 061
  2. TETRACYCLINE [Concomitant]
  3. NORITATE [Concomitant]

REACTIONS (2)
  - DIPLOPIA [None]
  - EYE DISORDER [None]
